FAERS Safety Report 7127423-4 (Version None)
Quarter: 2010Q4

REPORT INFORMATION
  Report Type: 
  Country: None (occurrence: None)
  Receive Date: 20101129
  Receipt Date: 20090902
  Transmission Date: 20110411
  Serious: No
  Sender: FDA-Public Use
  Company Number: US-PFIZER INC-2009240648

PATIENT
  Sex: Female
  Weight: 46.3 kg

DRUGS (10)
  1. REVATIO [Suspect]
     Indication: PULMONARY HYPERTENSION
     Dosage: 20 MG, 3X/DAY DAILY DOSE: 60 MG
     Route: 048
     Dates: start: 20090618, end: 20090710
  2. IPRATROPIUM BROMIDE AND ALBUTEROL SULFATE [Concomitant]
     Indication: CHRONIC OBSTRUCTIVE PULMONARY DISEASE
     Dosage: UNK
  3. ADVAIR DISKUS 100/50 [Concomitant]
     Indication: CHRONIC OBSTRUCTIVE PULMONARY DISEASE
     Dosage: UNK
  4. PREDNISONE [Concomitant]
     Indication: CHRONIC OBSTRUCTIVE PULMONARY DISEASE
     Dosage: 10 MG, 1X/DAY
     Route: 048
  5. FUROSEMIDE [Concomitant]
     Indication: OEDEMA PERIPHERAL
     Dosage: 40 MG, 1X/DAY
     Route: 048
  6. KLOR-CON [Concomitant]
     Indication: OEDEMA PERIPHERAL
     Dosage: 20 MG, 1X/DAY
     Route: 048
  7. ALENDRONIC ACID [Concomitant]
     Indication: OSTEOPOROSIS
     Dosage: 75 MG, WEEKLY
     Route: 048
  8. DORZOLAMIDE HYDROCHLORIDE [Concomitant]
     Indication: GLAUCOMA
     Dosage: UNK
     Route: 061
  9. BRIMONIDINE TARTRATE [Concomitant]
     Indication: GLAUCOMA
     Route: 061
  10. BIMATOPROST [Concomitant]
     Indication: GLAUCOMA
     Route: 061

REACTIONS (1)
  - PRURITUS [None]
